FAERS Safety Report 19828733 (Version 7)
Quarter: 2025Q1

REPORT INFORMATION
  Report Type: Report from Study
  Country: DE (occurrence: DE)
  Receive Date: 20210914
  Receipt Date: 20250326
  Transmission Date: 20250409
  Serious: Yes (Other)
  Sender: TAKEDA
  Company Number: DE-TAKEDA-2021TUS054484

PATIENT
  Age: 23 Year
  Sex: Male

DRUGS (17)
  1. TEDUGLUTIDE [Suspect]
     Active Substance: TEDUGLUTIDE
     Indication: Short-bowel syndrome
     Dosage: 4.2 MILLIGRAM, QD
     Dates: start: 20180921, end: 20221006
  2. TEDUGLUTIDE [Suspect]
     Active Substance: TEDUGLUTIDE
     Dosage: 4.2 MILLIGRAM, 4/WEEK
     Dates: start: 20221007
  3. TEDUGLUTIDE [Suspect]
     Active Substance: TEDUGLUTIDE
  4. TEDUGLUTIDE [Suspect]
     Active Substance: TEDUGLUTIDE
  5. PROPOFOL [Concomitant]
     Active Substance: PROPOFOL
     Indication: Colonoscopy
     Dosage: 260 MILLIGRAM, SINGLE
     Dates: start: 20210825, end: 20210825
  6. PROPOFOL [Concomitant]
     Active Substance: PROPOFOL
     Indication: Endoscopy
     Dosage: 360 MILLIGRAM, SINGLE
     Dates: start: 20210827, end: 20210827
  7. PROPOFOL [Concomitant]
     Active Substance: PROPOFOL
     Dosage: 500 MILLIGRAM, SINGLE
     Dates: start: 20221006, end: 20221006
  8. PROPOFOL [Concomitant]
     Active Substance: PROPOFOL
     Dosage: 640 MILLIGRAM, SINGLE
     Dates: start: 20230706, end: 20230706
  9. PROPOFOL [Concomitant]
     Active Substance: PROPOFOL
     Dosage: 640 MILLIGRAM, SINGLE
     Dates: start: 20230706, end: 20230706
  10. PROPOFOL [Concomitant]
     Active Substance: PROPOFOL
     Dosage: 180 MILLIGRAM, SINGLE
     Dates: start: 20240614, end: 20240614
  11. LOPERAMIDE [Concomitant]
     Active Substance: LOPERAMIDE
     Indication: Bowel movement irregularity
     Dosage: 4 MILLIGRAM, QD
  12. LOPERAMIDE [Concomitant]
     Active Substance: LOPERAMIDE
  13. FOLIC ACID [Concomitant]
     Active Substance: FOLIC ACID
     Indication: Folate deficiency
     Dosage: 5 MILLIGRAM, QD
     Dates: start: 201811
  14. PANTOPRAZOLE [Concomitant]
     Active Substance: PANTOPRAZOLE
     Indication: Gastric pH increased
     Dosage: 80 MILLIGRAM, BID
  15. PANTOPRAZOLE [Concomitant]
     Active Substance: PANTOPRAZOLE
     Dosage: 40 MILLIGRAM, QD
  16. VITAMIN B12 [Concomitant]
     Active Substance: CYANOCOBALAMIN
     Indication: Short-bowel syndrome
  17. CHOLESTYRAMINE [Concomitant]
     Active Substance: CHOLESTYRAMINE
     Indication: Diarrhoea
     Dosage: 4 GRAM, QD
     Dates: start: 20221006

REACTIONS (2)
  - Gastric mucosal hypertrophy [Not Recovered/Not Resolved]
  - Gastric adenoma [Not Recovered/Not Resolved]

NARRATIVE: CASE EVENT DATE: 20210826
